FAERS Safety Report 7794439-4 (Version None)
Quarter: 2011Q3

REPORT INFORMATION
  Report Type: 
  Country: None (occurrence: None)
  Receive Date: 20110929
  Receipt Date: 20110919
  Transmission Date: 20111222
  Serious: Yes (Hospitalization)
  Sender: FDA-Public Use
  Company Number: LEO-2011-00557

PATIENT
  Age: 77 Year
  Sex: Female

DRUGS (7)
  1. BISOPROLOL FUMARATE [Concomitant]
  2. INNOHEP [Suspect]
     Indication: MITRAL VALVE REPLACEMENT
     Dosage: 1200 IU, SUBCUTANEOUS
     Route: 058
     Dates: start: 20110126, end: 20110619
  3. CORDARONE [Concomitant]
  4. ZOFRAN [Concomitant]
  5. CONTRAMAL (TRAMADOL HYDROCHLORIDE) [Concomitant]
  6. RABEPRAZOLE SODIUM [Concomitant]
  7. CALCIPARINE [Concomitant]

REACTIONS (3)
  - INCORRECT DRUG ADMINISTRATION DURATION [None]
  - MUSCLE HAEMORRHAGE [None]
  - OVERDOSE [None]
